FAERS Safety Report 6077051-7 (Version None)
Quarter: 2009Q1

REPORT INFORMATION
  Report Type: 
  Country: None (occurrence: None)
  Receive Date: 20090213
  Receipt Date: 20090204
  Transmission Date: 20090719
  Serious: Yes (Hospitalization)
  Sender: FDA-Public Use
  Company Number: PR-JNJFOC-20090202022

PATIENT
  Age: 37 Year
  Sex: Female

DRUGS (1)
  1. REMICADE [Suspect]
     Indication: CROHN'S DISEASE
     Dosage: 2 INFUSIONS GIVEN
     Route: 042

REACTIONS (4)
  - LYMPHADENOPATHY MEDIASTINAL [None]
  - MALAISE [None]
  - NIGHT SWEATS [None]
  - PYREXIA [None]
